FAERS Safety Report 9452772 (Version 2)
Quarter: 2013Q3

REPORT INFORMATION
  Report Type: Report from Study
  Country: US (occurrence: US)
  Receive Date: 20130812
  Receipt Date: 20130910
  Transmission Date: 20140515
  Serious: Yes (Death)
  Sender: FDA-Public Use
  Company Number: PHEH2013US016746

PATIENT
  Sex: Male

DRUGS (14)
  1. TOBI [Suspect]
     Indication: OBSTRUCTIVE AIRWAYS DISORDER
     Dosage: (300MG 5 ML), (EVERY 12 HOURS, FOR 7 DAYS AND THEN 7 DAYS OFF)
     Dates: start: 20130211
  2. TOBI [Suspect]
     Indication: PERIPHERAL T-CELL LYMPHOMA UNSPECIFIED
  3. MYCOPHENOLATE [Concomitant]
     Dosage: UNK
  4. AMBIEN [Concomitant]
     Dosage: UNK
  5. BACTRIM [Concomitant]
     Dosage: UNK
  6. CELEXA [Concomitant]
     Dosage: UNK
  7. CELLCEPT [Concomitant]
     Dosage: UNK
  8. KENALOG [Concomitant]
     Dosage: UNK
  9. NOXAFIL [Concomitant]
     Dosage: UNK
  10. OXYCODONE [Concomitant]
     Dosage: UNK
  11. PREDNISONE [Concomitant]
     Dosage: UNK
  12. PRILOSEC [Concomitant]
     Dosage: UNK
  13. TACROLIMUS [Concomitant]
     Dosage: UNK
  14. VALTREX [Concomitant]
     Dosage: UNK

REACTIONS (2)
  - Chronic obstructive pulmonary disease [Fatal]
  - Chronic graft versus host disease [Fatal]
